FAERS Safety Report 18425345 (Version 3)
Quarter: 2021Q1

REPORT INFORMATION
  Report Type: Spontaneous
  Country: JP (occurrence: JP)
  Receive Date: 20201026
  Receipt Date: 20210329
  Transmission Date: 20210419
  Serious: Yes (Hospitalization)
  Sender: FDA-Public Use
  Company Number: JP-ELI_LILLY_AND_COMPANY-JP202010008532

PATIENT
  Age: 72 Year
  Sex: Female
  Weight: 42 kg

DRUGS (1)
  1. CYRAMZA [Suspect]
     Active Substance: RAMUCIRUMAB
     Indication: HEPATOCELLULAR CARCINOMA
     Dosage: 300 MG, OTHER
     Route: 041
     Dates: start: 20201002

REACTIONS (2)
  - Peritonitis [Recovered/Resolved]
  - Fall [Recovered/Resolved]

NARRATIVE: CASE EVENT DATE: 20201014
